FAERS Safety Report 13567163 (Version 1)
Quarter: 2017Q2

REPORT INFORMATION
  Report Type: Spontaneous
  Country: US (occurrence: US)
  Receive Date: 20170522
  Receipt Date: 20170522
  Transmission Date: 20170830
  Serious: No
  Sender: FDA-Public Use
  Company Number: US-TEVA-767413ACC

PATIENT
  Age: 9 Year
  Sex: Male

DRUGS (1)
  1. CLONIDINE. [Suspect]
     Active Substance: CLONIDINE
     Route: 065

REACTIONS (2)
  - Application site reaction [Unknown]
  - Rash [Unknown]
